FAERS Safety Report 16765429 (Version 4)
Quarter: 2019Q3

REPORT INFORMATION
  Report Type: Report from Study
  Country: JP (occurrence: JP)
  Receive Date: 20190903
  Receipt Date: 20190920
  Transmission Date: 20191005
  Serious: Yes (Death, Hospitalization, Other)
  Sender: FDA-Public Use
  Company Number: JP-GLAXOSMITHKLINE-JP2019JPN157818

PATIENT
  Age: 78 Year
  Sex: Male

DRUGS (12)
  1. MEPOLIZUMAB [Suspect]
     Active Substance: MEPOLIZUMAB
     Indication: EOSINOPHILIC GRANULOMATOSIS WITH POLYANGIITIS
     Dosage: 300 MG, EVERY MONTHS
     Route: 058
     Dates: start: 20180814, end: 20190801
  2. FOIPAN [Concomitant]
     Active Substance: CAMOSTAT MESYLATE
     Dosage: 100 MG, UNK
  3. PARIET [Concomitant]
     Active Substance: RABEPRAZOLE SODIUM
     Dosage: 1.0 MG, UNK
  4. BONALON [Concomitant]
     Active Substance: ALENDRONATE SODIUM
     Dosage: 35 MG, UNK
  5. PLAVIX [Concomitant]
     Active Substance: CLOPIDOGREL BISULFATE
     Dosage: 75 MG, UNK
  6. MIYA-BM [Concomitant]
     Active Substance: CLOSTRIDIUM BUTYRICUM SPORES STRAIN M-55
     Dosage: 1 DF, UNK
  7. BAKTAR [Concomitant]
     Active Substance: SULFAMETHOXAZOLE\TRIMETHOPRIM
     Dosage: UNK
  8. RELVAR [Concomitant]
     Active Substance: FLUTICASONE FUROATE\VILANTEROL TRIFENATATE
     Dosage: 100 ?G, UNK
  9. PREDONINE [Concomitant]
     Active Substance: PREDNISOLONE
     Dosage: 5 MG, UNK
  10. ONEALFA [Concomitant]
     Active Substance: ALFACALCIDOL
     Dosage: 0.5 ?G, UNK
  11. LENDORMIN [Concomitant]
     Active Substance: BROTIZOLAM
     Dosage: 0.25 MG, UNK
  12. ZETIA [Concomitant]
     Active Substance: EZETIMIBE
     Dosage: 10 MG, UNK

REACTIONS (9)
  - Cerebral infarction [Unknown]
  - Eosinophil count increased [Unknown]
  - Asthenia [Unknown]
  - Cognitive disorder [Not Recovered/Not Resolved]
  - Pneumonia aspiration [Fatal]
  - Cerebral atrophy [Unknown]
  - Cerebral ventricle dilatation [Unknown]
  - Central nervous system lesion [Unknown]
  - Malaise [Unknown]

NARRATIVE: CASE EVENT DATE: 20190801
